FAERS Safety Report 8378364-6 (Version None)
Quarter: 2012Q2

REPORT INFORMATION
  Report Type: 
  Country: None (occurrence: None)
  Receive Date: 20120522
  Receipt Date: 20120515
  Transmission Date: 20120825
  Serious: Yes (Hospitalization)
  Sender: FDA-Public Use
  Company Number: US-ELI_LILLY_AND_COMPANY-US201203007606

PATIENT
  Sex: Female
  Weight: 58.957 kg

DRUGS (13)
  1. CRESTOR [Concomitant]
     Dosage: 10 MG, QD
  2. HUMULIN R [Suspect]
     Dosage: 120 U, QID
     Route: 058
  3. FISH OIL [Concomitant]
     Dosage: 1000 MG, BID
  4. DIGOXIN [Concomitant]
     Dosage: 0.125 MG, QD
  5. AMOXICILLIN [Concomitant]
     Dosage: 875 MG, BID
  6. INSULIN [Concomitant]
  7. CALCIUM [Concomitant]
     Dosage: 500 MG, BID
  8. HUMULIN R [Suspect]
     Indication: TYPE 2 DIABETES MELLITUS
     Dosage: 50 U, QD
     Route: 058
     Dates: start: 20110401
  9. ROBITUSSIN                         /00048001/ [Concomitant]
     Dosage: 15 MG, UNK
  10. DIOVAN [Concomitant]
     Dosage: 320 MG, QD
  11. AMLODIPINE BESYLATE [Concomitant]
     Dosage: 10 MG, QD
  12. METFORMIN HCL [Concomitant]
  13. LANTUS [Concomitant]
     Dosage: 80 U, BID

REACTIONS (1)
  - DIABETES MELLITUS INADEQUATE CONTROL [None]
